FAERS Safety Report 7939300-7 (Version None)
Quarter: 2011Q4

REPORT INFORMATION
  Report Type: 
  Country: None (occurrence: None)
  Receive Date: 20111125
  Receipt Date: 20110126
  Transmission Date: 20120403
  Serious: No
  Sender: FDA-Public Use
  Company Number: US-BAYER-2011-074595

PATIENT
  Sex: Male

DRUGS (1)
  1. SARGRAMOSTIM [Suspect]
     Indication: PROSTATE CANCER METASTATIC
     Dosage: 1/2 CC EVERY EVENING
     Route: 058

REACTIONS (1)
  - RASH ERYTHEMATOUS [None]
